FAERS Safety Report 5010837-6 (Version None)
Quarter: 2006Q2

REPORT INFORMATION
  Report Type: 
  Country: None (occurrence: None)
  Receive Date: 20060525
  Receipt Date: 20060519
  Transmission Date: 20061013
  Serious: Yes (Hospitalization)
  Sender: FDA-Public Use
  Company Number: US-GLAXOSMITHKLINE-A0606348A

PATIENT
  Age: 58 Year
  Sex: Female

DRUGS (7)
  1. ADVAIR DISKUS 100/50 [Suspect]
     Indication: CHRONIC OBSTRUCTIVE PULMONARY DISEASE
     Dosage: 1PUFF TWICE PER DAY
     Route: 055
     Dates: start: 20020101
  2. ALBUTEROL SULFATE AUTOHALER [Concomitant]
  3. XOPENEX [Concomitant]
  4. SINGULAIR [Concomitant]
  5. PARNATE [Concomitant]
  6. PREMPHASE 14/14 [Concomitant]
  7. FOSAMAX [Concomitant]

REACTIONS (7)
  - HAIR DISORDER [None]
  - HAIR GROWTH ABNORMAL [None]
  - HORMONE LEVEL ABNORMAL [None]
  - OEDEMA PERIPHERAL [None]
  - PNEUMONIA [None]
  - SKIN DISORDER [None]
  - SKIN HYPERTROPHY [None]
